FAERS Safety Report 16795186 (Version 1)
Quarter: 2019Q3

REPORT INFORMATION
  Report Type: Spontaneous
  Country: JP (occurrence: JP)
  Receive Date: 20190911
  Receipt Date: 20190911
  Transmission Date: 20191005
  Serious: Yes (Hospitalization, Other)
  Sender: FDA-Public Use
  Company Number: JP-TAKEDA-2019TJP016604AA

PATIENT
  Age: 25 Year
  Sex: Female
  Weight: 75.8 kg

DRUGS (10)
  1. MOSAPRIDE CITRATE [Concomitant]
     Active Substance: MOSAPRIDE CITRATE
     Indication: INTELLECTUAL DISABILITY
     Dosage: 5 MILLIGRAM, BID
     Route: 065
     Dates: start: 20180327
  2. VONOSAP PACK 400 [Suspect]
     Active Substance: AMOXICILLIN\CLARITHROMYCIN\VONOPRAZAN FUMURATE
     Indication: HELICOBACTER TEST POSITIVE
     Dosage: 0.5 DOSAGE FORM, BID
     Route: 048
     Dates: start: 20180319, end: 20180326
  3. BROTIZOLAM [Concomitant]
     Active Substance: BROTIZOLAM
     Indication: INTELLECTUAL DISABILITY
     Dosage: 0.5 MILLIGRAM
     Route: 065
  4. LIPIDIL [Concomitant]
     Active Substance: FENOFIBRATE
     Indication: HYPERLIPIDAEMIA
     Dosage: 106.6 MILLIGRAM, QD
     Route: 065
     Dates: start: 20171104
  5. BROTIZOLAM [Concomitant]
     Active Substance: BROTIZOLAM
     Indication: INSOMNIA
  6. ETIZOLAM [Concomitant]
     Active Substance: ETIZOLAM
     Indication: ANXIETY
  7. LAC-B [Concomitant]
     Active Substance: BIFIDOBACTERIUM SPP.
     Indication: INTELLECTUAL DISABILITY
     Dosage: 1 GRAM, TID
     Route: 065
  8. STRATTERA [Concomitant]
     Active Substance: ATOMOXETINE HYDROCHLORIDE
     Indication: INTELLECTUAL DISABILITY
     Dosage: 10 MILLIGRAM, BID
     Route: 065
     Dates: start: 20180326
  9. ETIZOLAM [Concomitant]
     Active Substance: ETIZOLAM
     Indication: INTELLECTUAL DISABILITY
     Dosage: 0.5 MILLIGRAM
     Route: 065
  10. ROZEREM [Suspect]
     Active Substance: RAMELTEON
     Indication: INTELLECTUAL DISABILITY
     Dosage: 8 MILLIGRAM, QD
     Route: 065

REACTIONS (2)
  - Drug eruption [Recovering/Resolving]
  - Off label use [Unknown]

NARRATIVE: CASE EVENT DATE: 20190401
